FAERS Safety Report 15100525 (Version 1)
Quarter: 2018Q3

REPORT INFORMATION
  Report Type: Other
  Country: DE (occurrence: DE)
  Receive Date: 20180703
  Receipt Date: 20180703
  Transmission Date: 20181010
  Serious: No
  Sender: FDA-Public Use
  Company Number: DE-LUPIN PHARMACEUTICALS INC.-2018-00876

PATIENT
  Age: 81 Year
  Sex: Male
  Weight: 81 kg

DRUGS (8)
  1. EZETROL [Suspect]
     Active Substance: EZETIMIBE
     Indication: CAROTID ARTERY STENOSIS
  2. EZETROL [Suspect]
     Active Substance: EZETIMIBE
     Indication: HYPERCHOLESTEROLAEMIA
     Dosage: 10 MG, QD
     Route: 048
     Dates: start: 2017
  3. SIMVASTATIN. [Suspect]
     Active Substance: SIMVASTATIN
     Indication: CAROTID ARTERY STENOSIS
  4. ATORVASTATIN [Suspect]
     Active Substance: ATORVASTATIN
     Indication: HYPERCHOLESTEROLAEMIA
  5. LOVASTATIN. [Suspect]
     Active Substance: LOVASTATIN
     Indication: CAROTID ARTERY STENOSIS
  6. SIMVASTATIN. [Suspect]
     Active Substance: SIMVASTATIN
     Indication: HYPERCHOLESTEROLAEMIA
     Dosage: 20 MG, QD
     Route: 048
     Dates: start: 2016, end: 2016
  7. ATORVASTATIN [Suspect]
     Active Substance: ATORVASTATIN
     Indication: CAROTID ARTERY STENOSIS
     Dosage: 20 MG, QD
     Route: 048
     Dates: start: 201609
  8. LOVASTATIN. [Suspect]
     Active Substance: LOVASTATIN
     Indication: HYPERCHOLESTEROLAEMIA
     Dosage: 20 MG, QD
     Route: 048
     Dates: start: 2016, end: 2016

REACTIONS (1)
  - Insomnia [Recovered/Resolved]
